FAERS Safety Report 22126982 (Version 2)
Quarter: 2023Q2

REPORT INFORMATION
  Report Type: Spontaneous
  Country: CN (occurrence: CN)
  Receive Date: 20230322
  Receipt Date: 20230407
  Transmission Date: 20230722
  Serious: Yes (Other)
  Sender: FDA-Public Use
  Company Number: CN-ELI_LILLY_AND_COMPANY-CN202302009803

PATIENT
  Age: 75 Year
  Sex: Female
  Weight: 65 kg

DRUGS (9)
  1. PEMETREXED [Suspect]
     Active Substance: PEMETREXED
     Indication: Epithelioid mesothelioma
     Dosage: 700 MG, OTHER
     Route: 065
     Dates: start: 20210702, end: 20211115
  2. BEVACIZUMAB [Suspect]
     Active Substance: BEVACIZUMAB
     Indication: Epithelioid mesothelioma
     Dosage: 0.4 G, 3/W
     Route: 065
     Dates: start: 20210702, end: 20210907
  3. CARBOPLATIN [Suspect]
     Active Substance: CARBOPLATIN
     Indication: Epithelioid mesothelioma
     Dosage: 300 MG, OTHER
     Route: 065
     Dates: start: 20210702, end: 20211115
  4. KEYTRUDA [Suspect]
     Active Substance: PEMBROLIZUMAB
     Indication: Epithelioid mesothelioma
     Dosage: 200 MG, OTHER
     Route: 065
     Dates: start: 20210817
  5. KEYTRUDA [Suspect]
     Active Substance: PEMBROLIZUMAB
     Dosage: 200 MG, OTHER
     Route: 065
     Dates: start: 20211206
  6. GEMCITABINE HYDROCHLORIDE [Concomitant]
     Active Substance: GEMCITABINE HYDROCHLORIDE
     Indication: Epithelioid mesothelioma
     Dosage: 1600 MG, UNKNOWN
     Route: 065
     Dates: start: 20220302
  7. VALSARTAN [Concomitant]
     Active Substance: VALSARTAN
     Indication: Hypertension
     Dosage: 100 MG, BID
     Dates: start: 202109
  8. AMLODIPINE [Concomitant]
     Active Substance: AMLODIPINE BESYLATE
     Indication: Hypertension
     Dosage: 5 MG, DAILY
     Dates: start: 202109
  9. ATORVASTATIN [Concomitant]
     Active Substance: ATORVASTATIN
     Indication: Hypertension
     Dosage: 20 MG, OTHER (GN, AS REPORTED)
     Dates: start: 202109

REACTIONS (7)
  - Hepatic failure [Recovered/Resolved]
  - Malignant neoplasm progression [Unknown]
  - Hypoproteinaemia [Not Recovered/Not Resolved]
  - Hypertension [Unknown]
  - Neutrophil count decreased [Recovered/Resolved]
  - Neutrophil count decreased [Recovered/Resolved]
  - White blood cell count decreased [Recovered/Resolved]

NARRATIVE: CASE EVENT DATE: 20210906
